FAERS Safety Report 6384489-7 (Version None)
Quarter: 2009Q3

REPORT INFORMATION
  Report Type: 
  Country: None (occurrence: None)
  Receive Date: 20090928
  Receipt Date: 20090211
  Transmission Date: 20100115
  Serious: Yes (Other)
  Sender: FDA-Public Use
  Company Number: 2008RR-19590

PATIENT
  Age: 11 Month
  Sex: Male

DRUGS (13)
  1. WESTCORT TOPICAL CREAM (HYDROCORTISONE) UNKNOWN [Suspect]
     Dosage: TOPICAL
     Route: 061
  2. WESTCORT TOPICAL OINTMENT(HYDROCORTISONE) OINTMENT, 0.2% [Suspect]
     Dosage: 525 G, TOPICAL
     Route: 061
  3. HYDROXYZINE [Concomitant]
  4. DIPHENHYDRAMINE HCL [Concomitant]
  5. DOXEPIN HCL [Concomitant]
  6. CEPHALEXIN [Concomitant]
  7. AMLODIPINE [Concomitant]
  8. TACROLIMUS [Concomitant]
  9. COSYNTROPIN [Concomitant]
  10. DESONIDE [Suspect]
     Dosage: TOPICAL
     Route: 061
  11. CLOBETASOL PROPIONATE [Suspect]
     Dosage: 65G
  12. BETAMETHASONE DIPROPIONATE [Suspect]
     Dosage: 50 G, TOPICAL
     Route: 061
  13. BETAMETHASONE VALERATE [Suspect]
     Dosage: 50 ML

REACTIONS (1)
  - CUSHING'S SYNDROME [None]
